FAERS Safety Report 7242312-2 (Version None)
Quarter: 2011Q1

REPORT INFORMATION
  Report Type: 
  Country: None (occurrence: None)
  Receive Date: 20110125
  Receipt Date: 20110113
  Transmission Date: 20110831
  Serious: Yes (Other)
  Sender: FDA-Public Use
  Company Number: US-BIOGENIDEC-2010BI035168

PATIENT
  Age: 36 Year
  Sex: Female

DRUGS (3)
  1. PROZAC [Concomitant]
     Dates: start: 20081113
  2. LANTUS [Concomitant]
     Dates: start: 20101222
  3. TYSABRI [Suspect]
     Indication: MULTIPLE SCLEROSIS
     Route: 042
     Dates: start: 20091130, end: 20100716

REACTIONS (2)
  - PREGNANCY [None]
  - GESTATIONAL DIABETES [None]
